FAERS Safety Report 26147231 (Version 1)
Quarter: 2025Q4

REPORT INFORMATION
  Report Type: Spontaneous
  Country: US (occurrence: US)
  Receive Date: 20251211
  Receipt Date: 20251211
  Transmission Date: 20260118
  Serious: Yes (Other)
  Sender: ELI LILLY AND COMPANY
  Company Number: US-ELI_LILLY_AND_COMPANY-US202512012972

PATIENT
  Age: 80 Year
  Sex: Male

DRUGS (3)
  1. ZEPBOUND [Suspect]
     Active Substance: TIRZEPATIDE
     Indication: Eye disorder
     Dosage: UNK UNK, UNKNOWN
     Route: 065
  2. ZEPBOUND [Suspect]
     Active Substance: TIRZEPATIDE
     Indication: Eye disorder
     Dosage: 10 MG, UNKNOWN
     Route: 065
     Dates: start: 20251106
  3. ZEPBOUND [Suspect]
     Active Substance: TIRZEPATIDE
     Indication: Eye disorder
     Dosage: 10 MG, UNKNOWN
     Route: 065
     Dates: start: 20251106

REACTIONS (2)
  - Neovascular age-related macular degeneration [Not Recovered/Not Resolved]
  - Off label use [Unknown]

NARRATIVE: CASE EVENT DATE: 20251203
